FAERS Safety Report 8615064-9 (Version None)
Quarter: 2012Q3

REPORT INFORMATION
  Report Type: 
  Country: None (occurrence: None)
  Receive Date: 20120823
  Receipt Date: 20120821
  Transmission Date: 20120928
  Serious: Yes (Death)
  Sender: FDA-Public Use
  Company Number: PHHY2012JP044321

PATIENT
  Age: 89 Year
  Sex: Female

DRUGS (5)
  1. EXJADE [Suspect]
     Dosage: 625 MG, DAILY
     Route: 048
     Dates: start: 20120525, end: 20120704
  2. DESFERAL [Suspect]
     Indication: IRON OVERLOAD
     Dosage: 1000 MG, UNK
     Route: 042
     Dates: start: 20120705, end: 20120701
  3. ONEALFA [Concomitant]
     Dosage: 0.5 MG, UNK
     Route: 048
  4. EXJADE [Suspect]
     Indication: IRON OVERLOAD
     Dosage: 625 MG, DAILY
     Route: 048
     Dates: start: 20120518, end: 20120523
  5. PREDNISOLONE [Concomitant]
     Dosage: 10 MG, UNK
     Route: 048

REACTIONS (4)
  - DRUG ADMINISTRATION ERROR [None]
  - PLATELET COUNT DECREASED [None]
  - DECREASED APPETITE [None]
  - SEPSIS [None]
